FAERS Safety Report 9920925 (Version 2)
Quarter: 2014Q1

REPORT INFORMATION
  Report Type: Spontaneous
  Country: US (occurrence: US)
  Receive Date: 20140225
  Receipt Date: 20140317
  Transmission Date: 20141002
  Serious: Yes (Hospitalization)
  Sender: FDA-Public Use
  Company Number: US-BIOGENIDEC-2014BI016522

PATIENT
  Age: 53 Year
  Sex: Female

DRUGS (15)
  1. AVONEX [Suspect]
     Indication: MULTIPLE SCLEROSIS
     Route: 030
     Dates: start: 20120312
  2. BACLOFEN [Concomitant]
  3. EFFEXOR XR [Concomitant]
  4. GABAPENTIN [Concomitant]
  5. HYDROCHLOROTHIAZIDE [Concomitant]
  6. KLOR-CON [Concomitant]
  7. LEVOTHYROXINE SODIUM [Concomitant]
  8. NALTREXONE HCI [Concomitant]
  9. OXYBUTYNIN CHLORIDE [Concomitant]
  10. PANTOPRAZOLE SODIUM [Concomitant]
  11. POTASSIUM CHLORIDE ER [Concomitant]
  12. ROPINIROLE HCI [Concomitant]
  13. VENLAFAXINE HCI [Concomitant]
  14. VITAMIN D3 [Concomitant]
  15. WARFARIN SODIUM [Concomitant]

REACTIONS (4)
  - Burns third degree [Unknown]
  - Wound sepsis [Unknown]
  - Decubitus ulcer [Unknown]
  - Amnesia [Unknown]
